FAERS Safety Report 5361354-5 (Version None)
Quarter: 2007Q2

REPORT INFORMATION
  Report Type: 
  Country: None (occurrence: None)
  Receive Date: 20070612
  Receipt Date: 20070608
  Transmission Date: 20071010
  Serious: Yes (Death, Other)
  Sender: FDA-Public Use
  Company Number: 2007SP011513

PATIENT
  Age: 29 Year
  Sex: Female
  Weight: 44 kg

DRUGS (18)
  1. TEMODAL [Suspect]
     Indication: OLIGODENDROGLIOMA
     Dosage: 75 MG/M2; QD; PO
     Route: 048
     Dates: start: 20061027, end: 20061212
  2. ALEVIATIN [Concomitant]
  3. UNASYN [Concomitant]
  4. FLUMARIN [Concomitant]
  5. EXCEGRAN [Concomitant]
  6. TAKEPRON QD [Concomitant]
  7. MAGENESIUM OXIDE [Concomitant]
  8. NASEA OD [Concomitant]
  9. BIOFERMIN R [Concomitant]
  10. PREDNISOLONE [Concomitant]
  11. GASTER D [Concomitant]
  12. PREDONINE [Concomitant]
  13. GASTER [Concomitant]
  14. PRIMPERAN INJ [Concomitant]
  15. ALEVIATIN [Concomitant]
  16. KYTRIL [Concomitant]
  17. BUP-4 [Concomitant]
  18. FERROMIA [Concomitant]

REACTIONS (4)
  - LYMPHOCYTE COUNT DECREASED [None]
  - PERFORMANCE STATUS DECREASED [None]
  - PNEUMONIA ASPIRATION [None]
  - SEPSIS [None]
